FAERS Safety Report 8276304-1 (Version None)
Quarter: 2012Q2

REPORT INFORMATION
  Report Type: 
  Country: None (occurrence: None)
  Receive Date: 20120412
  Receipt Date: 20120410
  Transmission Date: 20120825
  Serious: Yes (Other)
  Sender: FDA-Public Use
  Company Number: PHHY2012NL013049

PATIENT
  Sex: Female

DRUGS (8)
  1. ZOMETA [Suspect]
     Dosage: 4 MG/100ML ONE PER 56 DAYS
     Route: 042
     Dates: start: 20090305
  2. ZOMETA [Suspect]
     Dosage: 4 MG/100ML ONE PER 56 DAYS
     Route: 042
     Dates: start: 20111220
  3. FEMARA [Concomitant]
  4. ACETAMINOPHEN [Concomitant]
     Dosage: 500/10 X 4-6UNK
  5. ZOMETA [Suspect]
     Dosage: 4 MG/100ML ONE PER 56 DAYS
     Route: 042
     Dates: start: 20120410
  6. ZOMETA [Suspect]
     Indication: BREAST CANCER METASTATIC
     Dosage: 4 MG/100ML ONE PER 56 DAYS
     Route: 042
  7. ZOMETA [Suspect]
     Dosage: 4 MG/100ML ONE PER 56 DAYS
     Route: 042
     Dates: start: 20120214
  8. XELODA [Concomitant]
     Dosage: UNK

REACTIONS (13)
  - HERPES VIRUS INFECTION [None]
  - METASTASES TO LIVER [None]
  - NEOPLASM PROGRESSION [None]
  - METASTASES TO BONE [None]
  - CARBOHYDRATE ANTIGEN 125 INCREASED [None]
  - NEOPLASM MALIGNANT [None]
  - FATIGUE [None]
  - PAIN [None]
  - NOROVIRUS TEST POSITIVE [None]
  - HIP FRACTURE [None]
  - VIITH NERVE PARALYSIS [None]
  - LIVER FUNCTION TEST ABNORMAL [None]
  - METASTASES TO LUNG [None]
